FAERS Safety Report 17605943 (Version 1)
Quarter: 2020Q1

REPORT INFORMATION
  Report Type: Spontaneous
  Country: CA (occurrence: CA)
  Receive Date: 20200331
  Receipt Date: 20200331
  Transmission Date: 20200409
  Serious: Yes (Congenital Anomaly, Other)
  Sender: FDA-Public Use
  Company Number: CA-TEVA-2020-CA-1216355

PATIENT
  Age: 10 Year
  Sex: Female
  Weight: 11 kg

DRUGS (5)
  1. TOPIRAMATE. [Suspect]
     Active Substance: TOPIRAMATE
     Indication: SEIZURE
     Route: 065
  2. VALPROIC ACID. [Suspect]
     Active Substance: VALPROIC ACID
     Indication: SEIZURE
     Route: 065
  3. CALCIUM CARBONATE. [Concomitant]
     Active Substance: CALCIUM CARBONATE
     Dosage: 125 MILLIGRAM DAILY;
     Route: 065
  4. LEVOCARNITINE HYDROCHLORIDE [Concomitant]
     Active Substance: LEVOCARNITINE HYDROCHLORIDE
     Route: 065
  5. LANSOPRAZOLE. [Concomitant]
     Active Substance: LANSOPRAZOLE
     Route: 065

REACTIONS (9)
  - Blood alkaline phosphatase increased [Recovered/Resolved]
  - Proteinuria [Recovered/Resolved]
  - Hypophosphataemic osteomalacia [Recovered/Resolved]
  - Metabolic acidosis [Recovered/Resolved]
  - Renal tubular acidosis [Recovered/Resolved]
  - Fanconi syndrome [Recovered/Resolved]
  - Urine calcium/creatinine ratio increased [Recovered/Resolved]
  - Nephrocalcinosis [Recovered/Resolved]
  - Glycosuria [Recovered/Resolved]
